FAERS Safety Report 7363885-5 (Version None)
Quarter: 2011Q1

REPORT INFORMATION
  Report Type: 
  Country: None (occurrence: None)
  Receive Date: 20110321
  Receipt Date: 20110221
  Transmission Date: 20110831
  Serious: No
  Sender: FDA-Public Use
  Company Number: US-B.I. PHARMACEUTICALS,INC./RIDGEFIELD-2010-BP-15094BP

PATIENT
  Sex: Female

DRUGS (10)
  1. POTASSIUM CHLORIDE [Concomitant]
  2. PRADAXA [Suspect]
     Indication: CARDIAC DISORDER
  3. GLYBERIDE [Concomitant]
     Indication: TYPE 2 DIABETES MELLITUS
  4. AVAPRO [Concomitant]
     Indication: HYPERTENSION
  5. PRADAXA [Suspect]
     Indication: ATRIAL FIBRILLATION
     Dosage: 300 MG
     Route: 048
     Dates: start: 20101206
  6. LASIX [Concomitant]
     Indication: FLUID RETENTION
     Dosage: 240 MG
  7. METOPROLOL SUCCINATE [Concomitant]
     Indication: HYPERTENSION
  8. ALLOPURINOL [Concomitant]
     Indication: GOUT
  9. FAMOTIDINE [Concomitant]
     Indication: ABDOMINAL DISCOMFORT
  10. ZAROXOLYN [Concomitant]
     Indication: FLUID RETENTION

REACTIONS (5)
  - BLOOD GLUCOSE INCREASED [None]
  - FLATULENCE [None]
  - CONSTIPATION [None]
  - ABDOMINAL DISCOMFORT [None]
  - BLOOD GLUCOSE [None]
